FAERS Safety Report 14191232 (Version 1)
Quarter: 2017Q4

REPORT INFORMATION
  Report Type: Spontaneous
  Country: US (occurrence: US)
  Receive Date: 20171115
  Receipt Date: 20171115
  Transmission Date: 20180321
  Serious: Yes (Other)
  Sender: FDA-Public Use
  Company Number: US-PFIZER INC-2017486140

PATIENT
  Age: 54 Year
  Sex: Male
  Weight: 83.91 kg

DRUGS (3)
  1. GABAPENTIN. [Suspect]
     Active Substance: GABAPENTIN
     Indication: PAIN IN EXTREMITY
     Dosage: 300 MG, 3X/DAY
     Dates: start: 201708
  2. TRAMADOL. [Concomitant]
     Active Substance: TRAMADOL
     Indication: NECK PAIN
     Dosage: UNK
  3. TRAMADOL. [Concomitant]
     Active Substance: TRAMADOL
     Indication: LIMB DISCOMFORT

REACTIONS (6)
  - Drug ineffective for unapproved indication [Unknown]
  - Euphoric mood [Unknown]
  - Feeling abnormal [Unknown]
  - Feeling hot [Unknown]
  - Hypoaesthesia [Unknown]
  - Burning sensation [Unknown]
